FAERS Safety Report 18218117 (Version 1)
Quarter: 2020Q3

REPORT INFORMATION
  Report Type: Spontaneous
  Country: JP (occurrence: JP)
  Receive Date: 20200901
  Receipt Date: 20200901
  Transmission Date: 20201103
  Serious: Yes (Hospitalization)
  Sender: FDA-Public Use
  Company Number: JP-CELGENEUS-JPN-20200806882

PATIENT
  Age: 71 Year
  Sex: Male

DRUGS (53)
  1. ABRAXANE [Suspect]
     Active Substance: PACLITAXEL
     Indication: NON-SMALL CELL LUNG CANCER STAGE IV
     Dosage: 148 MG
     Route: 042
     Dates: start: 20190828, end: 20190828
  2. ABRAXANE [Suspect]
     Active Substance: PACLITAXEL
     Indication: NON-SMALL CELL LUNG CANCER STAGE IV
     Dosage: 148 MG
     Route: 042
     Dates: start: 20191106, end: 20191106
  3. MEDI4736 [Suspect]
     Active Substance: DURVALUMAB
     Dosage: 1500 MILLIGRAM
     Route: 042
     Dates: start: 20191127, end: 20191127
  4. BLINDED OLAPARIB [Suspect]
     Active Substance: OLAPARIB
     Indication: NON-SMALL CELL LUNG CANCER STAGE IV
     Dosage: 600 MILLIGRAM
     Route: 048
     Dates: start: 20191127, end: 20191224
  5. OXCODONE [Concomitant]
     Indication: CANCER PAIN
     Dosage: 5 MILLIGRAM
     Route: 048
     Dates: start: 20200713
  6. DEXART [Concomitant]
     Active Substance: DEXAMETHASONE SODIUM PHOSPHATE
     Indication: NAUSEA
     Dosage: 6.5MG ONCE/SINGLE ADMINISTRATION
     Route: 042
     Dates: start: 20200803, end: 20200803
  7. ABRAXANE [Suspect]
     Active Substance: PACLITAXEL
     Indication: NON-SMALL CELL LUNG CANCER STAGE IV
     Dosage: 151 MG
     Route: 042
     Dates: start: 20190731, end: 20190731
  8. ABRAXANE [Suspect]
     Active Substance: PACLITAXEL
     Indication: NON-SMALL CELL LUNG CANCER STAGE IV
     Dosage: 148 MG
     Route: 042
     Dates: start: 20191009, end: 20191009
  9. MEDI4736 [Suspect]
     Active Substance: DURVALUMAB
     Dosage: 1500 MILLIGRAM
     Route: 042
     Dates: start: 20200219, end: 20200219
  10. MEDI4736 [Suspect]
     Active Substance: DURVALUMAB
     Dosage: 1500 MILLIGRAM
     Route: 042
     Dates: start: 20200318, end: 20200318
  11. CARBOPLATIN. [Suspect]
     Active Substance: CARBOPLATIN
     Dosage: 520 MG
     Route: 042
     Dates: start: 20191030, end: 20191030
  12. BLINDED OLAPARIB [Suspect]
     Active Substance: OLAPARIB
     Indication: NON-SMALL CELL LUNG CANCER STAGE IV
     Dosage: 400 MILLIGRAM
     Route: 048
     Dates: start: 20200526, end: 20200608
  13. AVOLVE [Concomitant]
     Active Substance: DUTASTERIDE
     Indication: BENIGN PROSTATIC HYPERPLASIA
     Dosage: .5 MILLIGRAM
     Route: 048
     Dates: start: 2019
  14. EURAX H [Concomitant]
     Indication: PSORIASIS
     Dosage: PRN
     Route: 061
     Dates: start: 20200129
  15. ABRAXANE [Suspect]
     Active Substance: PACLITAXEL
     Indication: NON-SMALL CELL LUNG CANCER STAGE IV
     Dosage: 151 MG
     Route: 042
     Dates: start: 20190807, end: 20190807
  16. MEDI4736 [Suspect]
     Active Substance: DURVALUMAB
     Dosage: 1500 MILLIGRAM
     Route: 042
     Dates: start: 20190821, end: 20190821
  17. BLINDED OLAPARIB [Suspect]
     Active Substance: OLAPARIB
     Indication: NON-SMALL CELL LUNG CANCER STAGE IV
     Dosage: 500 MILLIGRAM
     Route: 048
     Dates: start: 20200417, end: 20200511
  18. BLINDED OLAPARIB [Suspect]
     Active Substance: OLAPARIB
     Indication: NON-SMALL CELL LUNG CANCER STAGE IV
     Dosage: 200 MILLIGRAM
     Route: 048
     Dates: start: 20200707, end: 20200707
  19. EVOXAC [Concomitant]
     Active Substance: CEVIMELINE HYDROCHLORIDE
     Indication: DRY MOUTH
     Dosage: 60 MILLIGRAM
     Route: 048
     Dates: start: 20200418, end: 20200707
  20. URSODEOXYCHOLIC ACID [Concomitant]
     Active Substance: URSODIOL
     Indication: AST/ALT RATIO ABNORMAL
     Dosage: 200 MILLIGRAM
     Route: 048
     Dates: start: 20200716, end: 20200716
  21. CARBOPLATIN. [Suspect]
     Active Substance: CARBOPLATIN
     Indication: NON-SMALL CELL LUNG CANCER STAGE IV
     Dosage: 570 MG
     Route: 042
     Dates: start: 20190731, end: 20190731
  22. NOVAMIN [Concomitant]
     Indication: NAUSEA
     Dosage: 15 MILLIGRAM
     Route: 048
     Dates: start: 20200714
  23. URSODEOXYCHOLIC ACID [Concomitant]
     Active Substance: URSODIOL
     Route: 048
     Dates: start: 20200717
  24. MEDI4736 [Suspect]
     Active Substance: DURVALUMAB
     Dosage: 1500 MILLIGRAM
     Route: 042
     Dates: start: 20191030, end: 20191030
  25. MEDI4736 [Suspect]
     Active Substance: DURVALUMAB
     Dosage: 1500 MILLIGRAM
     Route: 042
     Dates: start: 20200609, end: 20200609
  26. BLINDED OLAPARIB [Suspect]
     Active Substance: OLAPARIB
     Indication: NON-SMALL CELL LUNG CANCER STAGE IV
     Dosage: 300 MILLIGRAM
     Route: 048
     Dates: start: 20200103, end: 20200103
  27. BLINDED OLAPARIB [Suspect]
     Active Substance: OLAPARIB
     Indication: NON-SMALL CELL LUNG CANCER STAGE IV
     Dosage: 600 MILLIGRAM
     Route: 048
     Dates: start: 20200220, end: 20200317
  28. EVOXAC [Concomitant]
     Active Substance: CEVIMELINE HYDROCHLORIDE
     Dosage: 30 MILLIGRAM
     Route: 048
     Dates: start: 20200708, end: 20200804
  29. HIRUDOID [Concomitant]
     Active Substance: GLYCOSAMINOGLYCANS
     Indication: PSORIASIS
     Dosage: 1 APPLICATION AS REQUIRED
     Route: 061
     Dates: start: 20200129
  30. RESTAMIN [Concomitant]
     Active Substance: DIPHENHYDRAMINE
     Indication: HYPERSENSITIVITY
     Dosage: 50.0MG ONCE/SINGLE ADMINISTRATION
     Route: 048
     Dates: start: 20200805, end: 20200805
  31. ABRAXANE [Suspect]
     Active Substance: PACLITAXEL
     Indication: NON-SMALL CELL LUNG CANCER STAGE IV
     Dosage: 148 MG
     Route: 042
     Dates: start: 20190821, end: 20190821
  32. ABRAXANE [Suspect]
     Active Substance: PACLITAXEL
     Indication: NON-SMALL CELL LUNG CANCER STAGE IV
     Dosage: 148 MG
     Route: 042
     Dates: start: 20191030, end: 20191030
  33. MEDI4736 [Suspect]
     Active Substance: DURVALUMAB
     Dosage: 1500 MILLIGRAM
     Route: 042
     Dates: start: 20200417, end: 20200417
  34. CARBOPLATIN. [Suspect]
     Active Substance: CARBOPLATIN
     Dosage: 520 MG
     Route: 042
     Dates: start: 20190821, end: 20190821
  35. BLINDED OLAPARIB [Suspect]
     Active Substance: OLAPARIB
     Indication: NON-SMALL CELL LUNG CANCER STAGE IV
     Dosage: 300 MILLIGRAM
     Route: 048
     Dates: start: 20200219, end: 20200219
  36. BLINDED OLAPARIB [Suspect]
     Active Substance: OLAPARIB
     Indication: NON-SMALL CELL LUNG CANCER STAGE IV
     Dosage: 250 MILLIGRAM
     Route: 048
     Dates: start: 20200512, end: 20200512
  37. URIEF [Concomitant]
     Active Substance: SILODOSIN
     Indication: BENIGN PROSTATIC HYPERPLASIA
     Dosage: 8 MILLIGRAM
     Route: 048
     Dates: start: 20190801
  38. OXCODONE [Concomitant]
     Dosage: 5 MILLIGRAM
     Route: 048
     Dates: start: 20200714
  39. OXINORM [Concomitant]
     Indication: CANCER PAIN
     Dosage: 2.5MG AS REQUIRED
     Route: 048
     Dates: start: 20200714
  40. GRANISETRON [Concomitant]
     Active Substance: GRANISETRON
     Indication: NAUSEA
     Dosage: 1.0MG ONCE/SINGLE ADMINISTRATION
     Route: 042
     Dates: start: 20200803, end: 20200803
  41. ABRAXANE [Suspect]
     Active Substance: PACLITAXEL
     Indication: NON-SMALL CELL LUNG CANCER STAGE IV
     Dosage: 148 MG
     Route: 042
     Dates: start: 20190904, end: 20190904
  42. ABRAXANE [Suspect]
     Active Substance: PACLITAXEL
     Indication: NON-SMALL CELL LUNG CANCER STAGE IV
     Dosage: 148 MG
     Route: 042
     Dates: start: 20191002, end: 20191002
  43. MEDI4736 [Suspect]
     Active Substance: DURVALUMAB
     Dosage: 1500 MILLIGRAM
     Route: 042
     Dates: start: 20191225, end: 20191225
  44. MEDI4736 [Suspect]
     Active Substance: DURVALUMAB
     Dosage: 1500 MILLIGRAM
     Route: 042
     Dates: start: 20200512, end: 20200512
  45. CARBOPLATIN. [Suspect]
     Active Substance: CARBOPLATIN
     Dosage: 520 MG
     Route: 042
     Dates: start: 20190925, end: 20190925
  46. BLINDED OLAPARIB [Suspect]
     Active Substance: OLAPARIB
     Indication: NON-SMALL CELL LUNG CANCER STAGE IV
     Dosage: 600 MILLIGRAM
     Route: 048
     Dates: start: 20191225, end: 20200102
  47. BLINDED OLAPARIB [Suspect]
     Active Substance: OLAPARIB
     Indication: NON-SMALL CELL LUNG CANCER STAGE IV
     Dosage: 400 MILLIGRAM
     Route: 048
     Dates: start: 20200609, end: 20200706
  48. HACHIAZULE [Concomitant]
     Indication: GASTRITIS
     Dosage: 2.0G AS REQUIRED
     Route: 065
     Dates: start: 20200418
  49. ABRAXANE [Suspect]
     Active Substance: PACLITAXEL
     Indication: NON-SMALL CELL LUNG CANCER STAGE IV
     Dosage: 148 MG
     Route: 042
     Dates: start: 20190925, end: 20190925
  50. MEDI4736 [Suspect]
     Active Substance: DURVALUMAB
     Indication: NON-SMALL CELL LUNG CANCER STAGE IV
     Dosage: 1500 MILLIGRAM
     Route: 042
     Dates: start: 20190731, end: 20190731
  51. MEDI4736 [Suspect]
     Active Substance: DURVALUMAB
     Dosage: 1500 MILLIGRAM
     Route: 042
     Dates: start: 20190925, end: 20190925
  52. BLINDED OLAPARIB [Suspect]
     Active Substance: OLAPARIB
     Indication: NON-SMALL CELL LUNG CANCER STAGE IV
     Dosage: 300 MILLIGRAM
     Route: 048
     Dates: start: 20200318, end: 20200318
  53. RABEPRAZOLE SODIUM. [Concomitant]
     Active Substance: RABEPRAZOLE SODIUM
     Indication: GASTRITIS
     Dosage: 10 MILLIGRAM
     Route: 048
     Dates: start: 20200131

REACTIONS (1)
  - Type 1 diabetes mellitus [Not Recovered/Not Resolved]

NARRATIVE: CASE EVENT DATE: 20200813
